FAERS Safety Report 18945869 (Version 2)
Quarter: 2021Q1

REPORT INFORMATION
  Report Type: Spontaneous
  Country: DE (occurrence: DE)
  Receive Date: 20210226
  Receipt Date: 20210311
  Transmission Date: 20210420
  Serious: Yes (Other)
  Sender: FDA-Public Use
  Company Number: DE-TAKEDA-2021TUS010283

PATIENT
  Age: 55 Year
  Sex: Female

DRUGS (7)
  1. XAGRID [Suspect]
     Active Substance: ANAGRELIDE HYDROCHLORIDE
     Dosage: 0.5, NEXT DAY (IN THE MORNING), ALTERNATING EACH DAY
     Route: 065
     Dates: start: 2005
  2. XAGRID [Suspect]
     Active Substance: ANAGRELIDE HYDROCHLORIDE
     Dosage: 0.5, THE NEXT DAY (IN THE EVENING), ALTERNATING EACH DAY
     Route: 065
     Dates: start: 2005
  3. JAKAVI [Concomitant]
     Active Substance: RUXOLITINIB
     Dosage: UNK
     Route: 065
  4. XAGRID [Suspect]
     Active Substance: ANAGRELIDE HYDROCHLORIDE
     Dosage: UNK
     Route: 065
     Dates: start: 2015
  5. XAGRID [Suspect]
     Active Substance: ANAGRELIDE HYDROCHLORIDE
     Indication: ESSENTIAL THROMBOCYTHAEMIA
     Dosage: 1 MILLIGRAM, IN THE MORNING, ALTERNATIN EACH DAY
     Route: 065
     Dates: start: 2005
  6. XAGRID [Suspect]
     Active Substance: ANAGRELIDE HYDROCHLORIDE
     Dosage: 0.5 MILLIGRAM, IN THE EVENING, ALTERNATINGE EACH DAY
     Route: 065
     Dates: start: 2005
  7. INTERFERON [Concomitant]
     Active Substance: INTERFERON
     Dosage: UNK
     Route: 065

REACTIONS (3)
  - Disease progression [Unknown]
  - Inappropriate schedule of product administration [Unknown]
  - Myelofibrosis [Unknown]
